FAERS Safety Report 5688208-9 (Version None)
Quarter: 2008Q1

REPORT INFORMATION
  Report Type: 
  Country: None (occurrence: None)
  Receive Date: 20080327
  Receipt Date: 20080312
  Transmission Date: 20080703
  Serious: Yes (Hospitalization)
  Sender: FDA-Public Use
  Company Number: 2007002473

PATIENT
  Age: 78 Year
  Sex: Male

DRUGS (5)
  1. MACUGEN [Suspect]
     Indication: MACULAR DEGENERATION
     Dosage: (0.3 MG)
     Dates: start: 20071123, end: 20071123
  2. BIMATOPROST [Concomitant]
  3. GLICLAZIDE (GLICLAZIDE) [Concomitant]
  4. ATORVASTATIN CALCIUM [Concomitant]
  5. METOPROLOL (METOPR) [Concomitant]

REACTIONS (3)
  - ATRIAL FIBRILLATION [None]
  - CHEST PAIN [None]
  - TACHYCARDIA [None]
